FAERS Safety Report 14982315 (Version 1)
Quarter: 2018Q2

REPORT INFORMATION
  Report Type: Spontaneous
  Country: US (occurrence: US)
  Receive Date: 20180515
  Receipt Date: 20180515
  Transmission Date: 20180711
  Serious: Yes (Disabling)
  Sender: FDA-Public Use
  Company Number: None

PATIENT
  Age: 53 Year
  Sex: Male
  Weight: 60.78 kg

DRUGS (13)
  1. VITAMIN D [Concomitant]
     Active Substance: CHOLECALCIFEROL
  2. VITAMIN K2 [Concomitant]
     Active Substance: MENAQUINONE 6
  3. VITAMIN C [Concomitant]
     Active Substance: ASCORBIC ACID
  4. SOLGAR MULTI-VITAMIN [Concomitant]
  5. THEOPHYLINE [Concomitant]
     Active Substance: THEOPHYLLINE ANHYDROUS
  6. FLONASE [Concomitant]
     Active Substance: FLUTICASONE PROPIONATE
  7. AVASTIN [Suspect]
     Active Substance: BEVACIZUMAB
     Indication: ADENOCARCINOMA
     Route: 042
     Dates: start: 20170202, end: 20180308
  8. MAGNESIUM [Concomitant]
     Active Substance: MAGNESIUM
  9. CALCIUM [Concomitant]
     Active Substance: CALCIUM
  10. TURMURIC [Concomitant]
  11. FLOVENT [Concomitant]
     Active Substance: FLUTICASONE PROPIONATE
  12. CLONAZEPAM. [Concomitant]
     Active Substance: CLONAZEPAM
  13. PROAIR HFA [Concomitant]
     Active Substance: ALBUTEROL SULFATE

REACTIONS (3)
  - Hyperkeratosis [None]
  - Fatigue [None]
  - Sciatica [None]

NARRATIVE: CASE EVENT DATE: 20180309
